FAERS Safety Report 8530631-9 (Version None)
Quarter: 2012Q3

REPORT INFORMATION
  Report Type: 
  Country: None (occurrence: None)
  Receive Date: 20120705
  Receipt Date: 20120530
  Transmission Date: 20120928
  Serious: Yes (Other)
  Sender: FDA-Public Use
  Company Number: 2012032515

PATIENT
  Age: 77 Year
  Sex: Female

DRUGS (1)
  1. HIZENTRA [Suspect]
     Indication: PRIMARY IMMUNODEFICIENCY SYNDROME
     Dosage: NI NI

REACTIONS (2)
  - JOINT INJURY [None]
  - CHONDROPATHY [None]
